FAERS Safety Report 4944085-2 (Version None)
Quarter: 2006Q1

REPORT INFORMATION
  Report Type: 
  Country: None (occurrence: None)
  Receive Date: 20060310
  Receipt Date: 20060221
  Transmission Date: 20060701
  Serious: Yes (Death)
  Sender: FDA-Public Use
  Company Number: IMP_1932_2005

PATIENT
  Age: 49 Year
  Sex: Male
  Weight: 104.3273 kg

DRUGS (4)
  1. BUPROPION HCL [Suspect]
     Indication: ANXIETY
     Dosage: 150 MG BID PO
     Route: 048
     Dates: start: 20051030, end: 20051101
  2. BUPROPION HCL [Suspect]
     Indication: DEPRESSION
     Dosage: 150 MG BID PO
     Route: 048
     Dates: start: 20051030, end: 20051101
  3. MINOCYCLINE HCL [Concomitant]
  4. BLOOD PRESSURE MEDICATION [Concomitant]

REACTIONS (4)
  - ANXIETY [None]
  - COMPLETED SUICIDE [None]
  - OBSESSIVE-COMPULSIVE DISORDER [None]
  - TREATMENT NONCOMPLIANCE [None]
